FAERS Safety Report 6648712-3 (Version None)
Quarter: 2010Q1

REPORT INFORMATION
  Report Type: 
  Country: None (occurrence: None)
  Receive Date: 20100324
  Receipt Date: 20100310
  Transmission Date: 20100710
  Serious: Yes (Other)
  Sender: FDA-Public Use
  Company Number: SY-ELI_LILLY_AND_COMPANY-SY201002004149

PATIENT
  Age: 50 Year
  Sex: Female
  Weight: 106 kg

DRUGS (4)
  1. BYETTA [Suspect]
     Indication: DIABETES MELLITUS
     Dosage: 10 UG, 2/D
     Route: 058
     Dates: start: 20091119, end: 20100125
  2. METFORMIN HCL [Concomitant]
     Indication: DIABETES MELLITUS
     Dosage: 2000 MG, UNK
  3. AMFEPRAMONE [Concomitant]
     Indication: HYPERLIPIDAEMIA
     Dosage: 300 G, UNK
  4. NORVASK [Concomitant]
     Indication: HYPERTENSION
     Dosage: 5 G, UNK

REACTIONS (3)
  - DIARRHOEA [None]
  - FATIGUE [None]
  - PANCREATITIS [None]
